FAERS Safety Report 20460662 (Version 4)
Quarter: 2023Q4

REPORT INFORMATION
  Report Type: Spontaneous
  Country: FR (occurrence: FR)
  Receive Date: 20220211
  Receipt Date: 20231113
  Transmission Date: 20240110
  Serious: No
  Sender: FDA-Public Use
  Company Number: FR-GILEAD-2022-0568396

PATIENT
  Age: 44 Year
  Sex: Female

DRUGS (10)
  1. AMPHOTERICIN B [Suspect]
     Active Substance: AMPHOTERICIN B
     Indication: Systemic candida
     Dosage: UNK UNK, UNKNOWN FREQ.
     Route: 042
  2. CITRATE [Concomitant]
     Active Substance: CITRIC ACID MONOHYDRATE
     Indication: Anticoagulant therapy
     Dosage: UNK UNK, UNKNOWN FREQ.
     Route: 065
  3. CEFAZOLIN [Concomitant]
     Active Substance: CEFAZOLIN
     Indication: Prophylaxis
     Dosage: UNK UNK, UNKNOWN FREQ.
     Route: 065
  4. DEFIBROTIDE [Concomitant]
     Active Substance: DEFIBROTIDE (BOVINE)
     Indication: Venoocclusive liver disease
     Dosage: UNK UNK, UNKNOWN FREQ.
     Route: 065
  5. CYCLOSPORINE [Concomitant]
     Active Substance: CYCLOSPORINE
     Indication: Immunosuppressant drug therapy
     Dosage: UNK UNK, UNKNOWN FREQ.
     Route: 065
  6. MYCOPHENOLIC ACID [Concomitant]
     Active Substance: MYCOPHENOLIC ACID
     Indication: Immunosuppressant drug therapy
     Dosage: UNK UNK, UNKNOWN FREQ.
     Route: 065
  7. ACYCLOVIR [Concomitant]
     Active Substance: ACYCLOVIR
     Indication: Venoocclusive liver disease
     Dosage: UNK UNK, UNKNOWN FREQ.
     Route: 065
  8. URSODIOL [Concomitant]
     Active Substance: URSODIOL
     Indication: Venoocclusive liver disease
     Dosage: UNK UNK, UNKNOWN FREQ.
     Route: 065
  9. PIPERACILLIN AND TAZOBACTAM [Concomitant]
     Active Substance: PIPERACILLIN SODIUM\TAZOBACTAM SODIUM
     Indication: Prophylaxis
     Dosage: UNK UNK, UNKNOWN FREQ.
     Route: 065
  10. CEFEPIME [Concomitant]
     Active Substance: CEFEPIME HYDROCHLORIDE
     Indication: Product used for unknown indication
     Dosage: UNK UNK, UNKNOWN FREQ.
     Route: 065

REACTIONS (1)
  - Drug ineffective [Not Recovered/Not Resolved]
